FAERS Safety Report 24057752 (Version 4)
Quarter: 2024Q4

REPORT INFORMATION
  Report Type: Spontaneous
  Country: US (occurrence: US)
  Receive Date: 20240707
  Receipt Date: 20241105
  Transmission Date: 20250115
  Serious: No
  Sender: ELI LILLY AND COMPANY
  Company Number: US-ELI_LILLY_AND_COMPANY-US202407002559

PATIENT
  Age: 43 Year
  Sex: Female

DRUGS (1)
  1. VERZENIO [Suspect]
     Active Substance: ABEMACICLIB
     Indication: Breast cancer female
     Dosage: 100 MG, BID
     Route: 048

REACTIONS (13)
  - Pain in extremity [Unknown]
  - Influenza like illness [Unknown]
  - Dyspnoea [Unknown]
  - Lymphadenopathy [Unknown]
  - Pruritus [Unknown]
  - Feeling cold [Unknown]
  - Hot flush [Unknown]
  - Taste disorder [Unknown]
  - Hypoaesthesia [Unknown]
  - Constipation [Unknown]
  - Arthralgia [Unknown]
  - Nausea [Unknown]
  - Asthenia [Unknown]

NARRATIVE: CASE EVENT DATE: 20240717
